FAERS Safety Report 6567182-7 (Version None)
Quarter: 2010Q1

REPORT INFORMATION
  Report Type: 
  Country: None (occurrence: None)
  Receive Date: 20100202
  Receipt Date: 20100126
  Transmission Date: 20100710
  Serious: Yes (Hospitalization, Other)
  Sender: FDA-Public Use
  Company Number: CHPA2010US01985

PATIENT
  Sex: Male

DRUGS (6)
  1. LAMISIL AT CREAM UNKNOWN AF OR JI (NCH) [Suspect]
     Dosage: UNK, UNK
     Route: 061
     Dates: start: 20071111
  2. GABAPENTIN [Concomitant]
  3. FUROSEMIDE [Concomitant]
  4. CITALOPRAM HYDROBROMIDE [Concomitant]
  5. CALCIUM [Concomitant]
  6. POTASSIUM [Concomitant]

REACTIONS (5)
  - BURNING SENSATION [None]
  - OEDEMA PERIPHERAL [None]
  - PAIN [None]
  - PARAESTHESIA [None]
  - WEIGHT INCREASED [None]
